FAERS Safety Report 9357484 (Version 1)
Quarter: 2013Q2

REPORT INFORMATION
  Report Type: Report from Study
  Country: US (occurrence: US)
  Receive Date: 20130620
  Receipt Date: 20130620
  Transmission Date: 20140414
  Serious: Yes (Other)
  Sender: FDA-Public Use
  Company Number: PHEH2013US013170

PATIENT
  Age: 77 Year
  Sex: Female

DRUGS (1)
  1. GLEEVEC [Suspect]
     Indication: CHRONIC MYELOID LEUKAEMIA
     Dosage: 1 DF, DAILY WITH FOOD
     Route: 048
     Dates: start: 200611

REACTIONS (4)
  - Asthma [Recovering/Resolving]
  - Seasonal allergy [Recovering/Resolving]
  - Dysphonia [Recovering/Resolving]
  - Dysphagia [Recovering/Resolving]
